FAERS Safety Report 11638330 (Version 1)
Quarter: 2015Q4

REPORT INFORMATION
  Report Type: Spontaneous
  Country: US (occurrence: US)
  Receive Date: 20151016
  Receipt Date: 20151016
  Transmission Date: 20160304
  Serious: No
  Sender: FDA-Public Use
  Company Number: US-INDIVIOR-RB-72183-2014

PATIENT
  Sex: Male

DRUGS (2)
  1. SUBOXONE [Suspect]
     Active Substance: BUPRENORPHINE HYDROCHLORIDE\NALOXONE HYDROCHLORIDE
     Indication: DRUG DEPENDENCE
     Dosage: TAKES SUBOXONE DAILY
     Route: 065
  2. NICOTINE. [Concomitant]
     Active Substance: NICOTINE
     Indication: PRODUCT USED FOR UNKNOWN INDICATION
     Dosage: UNK, A LITTLE POT, BUT NOT DAILY
     Route: 065

REACTIONS (6)
  - Insomnia [Unknown]
  - Restless legs syndrome [Unknown]
  - Apathy [Unknown]
  - Agitation [Unknown]
  - Intentional product misuse [Unknown]
  - Depression [Unknown]
